FAERS Safety Report 12499542 (Version 1)
Quarter: 2016Q2

REPORT INFORMATION
  Report Type: Spontaneous
  Country: US (occurrence: None)
  Receive Date: 20160624
  Receipt Date: 20160624
  Transmission Date: 20160815
  Serious: No
  Sender: FDA-Public Use
  Company Number: None

PATIENT
  Age: 63 Year
  Sex: Male

DRUGS (1)
  1. CAPECITABINE TAB 500MG [Suspect]
     Active Substance: CAPECITABINE

REACTIONS (8)
  - Joint swelling [None]
  - Neuropathy peripheral [None]
  - Oedema [None]
  - Headache [None]
  - Skin disorder [None]
  - Fatigue [None]
  - Peripheral swelling [None]
  - Nausea [None]

NARRATIVE: CASE EVENT DATE: 20160501
